FAERS Safety Report 7172197 (Version 2)
Quarter: 2014Q2

REPORT INFORMATION
  Report Type: Spontaneous
  Country: NO (occurrence: None)
  Receive Date: 20091027
  Receipt Date: 20140415
  Transmission Date: 20141212
  Serious: Yes (Other)
  Sender: FDA-Public Use
  Company Number: AUR-APL-2009-00899

PATIENT
  Age: 40 Day
  Sex: 0

DRUGS (1)
  1. TOPIRAMATE [Suspect]
     Indication: PRODUCT USED FOR UNKNOWN INDICATION
     Dosage: 50MG X 2 - TRANSPLACENTAL
     Route: 048

REACTIONS (2)
  - Diarrhoea [None]
  - Exposure during breast feeding [None]
